FAERS Safety Report 9740193 (Version 2)
Quarter: 2013Q4

REPORT INFORMATION
  Report Type: Spontaneous
  Country: JP (occurrence: JP)
  Receive Date: 20131209
  Receipt Date: 20131209
  Transmission Date: 20140711
  Serious: Yes (Hospitalization)
  Sender: FDA-Public Use
  Company Number: JP-BAYER-2013-123761

PATIENT
  Age: 60 Year
  Sex: Female
  Weight: 51 kg

DRUGS (2)
  1. MAGNEVIST [Suspect]
     Indication: NUCLEAR MAGNETIC RESONANCE IMAGING
     Dosage: 10 ML, ONCE
     Route: 042
     Dates: start: 20131011, end: 20131011
  2. MAGNEVIST [Suspect]
     Indication: BONE NEOPLASM

REACTIONS (4)
  - Face oedema [Unknown]
  - Dyspnoea [Unknown]
  - Altered state of consciousness [Unknown]
  - Injury [None]
